FAERS Safety Report 18312425 (Version 1)
Quarter: 2020Q3

REPORT INFORMATION
  Report Type: Other
  Country: CA (occurrence: CA)
  Receive Date: 20200925
  Receipt Date: 20200925
  Transmission Date: 20201103
  Serious: Yes (Other)
  Sender: FDA-Public Use
  Company Number: CA-COVIS PHARMA B.V.-2020COV00447

PATIENT
  Sex: Female

DRUGS (9)
  1. UMECLIDINIUM BROMIDE [Concomitant]
     Active Substance: UMECLIDINIUM BROMIDE
  2. OXYNEO [Concomitant]
     Active Substance: OXYCODONE
  3. OMEPRAZOLE MAGNESIUM. [Suspect]
     Active Substance: OMEPRAZOLE MAGNESIUM
     Indication: PRODUCT USED FOR UNKNOWN INDICATION
     Dosage: 20 MG, 1X/DAY
     Route: 048
  4. PLAQUENIL [Concomitant]
     Active Substance: HYDROXYCHLOROQUINE SULFATE
  5. VERAPAMIL HYDROCHLORIDE. [Concomitant]
     Active Substance: VERAPAMIL HYDROCHLORIDE
  6. ACTEMRA [Concomitant]
     Active Substance: TOCILIZUMAB
  7. BREO ELLIPTA [Concomitant]
     Active Substance: FLUTICASONE FUROATE\VILANTEROL TRIFENATATE
  8. ASPIRIN. [Concomitant]
     Active Substance: ASPIRIN
  9. REMICADE [Concomitant]
     Active Substance: INFLIXIMAB

REACTIONS (5)
  - Malaise [Unknown]
  - Cardiac disorder [Unknown]
  - Cerebrovascular accident [Unknown]
  - Renal failure [Unknown]
  - Chronic obstructive pulmonary disease [Unknown]
